FAERS Safety Report 9966537 (Version 2)
Quarter: 2014Q1

REPORT INFORMATION
  Report Type: Report from Study
  Country: US (occurrence: US)
  Receive Date: 20140305
  Receipt Date: 20140305
  Transmission Date: 20141002
  Serious: No
  Sender: FDA-Public Use
  Company Number: US-ABBVIE-13P-163-1108089-00

PATIENT
  Age: 47 Year
  Sex: Female

DRUGS (9)
  1. HUMIRA [Suspect]
     Indication: PSORIATIC ARTHROPATHY
     Dates: start: 20130502, end: 20130614
  2. FISH OIL [Concomitant]
     Indication: PRODUCT USED FOR UNKNOWN INDICATION
  3. OMEPRAZOLE [Concomitant]
     Indication: GASTROOESOPHAGEAL REFLUX DISEASE
  4. VITAMINS [Concomitant]
     Indication: PRODUCT USED FOR UNKNOWN INDICATION
  5. CO Q 10 [Concomitant]
     Indication: PRODUCT USED FOR UNKNOWN INDICATION
  6. EDARBYCLOR [Concomitant]
     Indication: HYPERTENSION
     Dosage: 40MG/12.5
  7. CLARITIN [Concomitant]
     Indication: SEASONAL ALLERGY
  8. VOLTAREN [Concomitant]
     Indication: PSORIATIC ARTHROPATHY
  9. ULTRAM [Concomitant]
     Indication: ARTHRALGIA

REACTIONS (9)
  - Asthenia [Recovered/Resolved]
  - Pyrexia [Recovering/Resolving]
  - Chills [Recovering/Resolving]
  - Psoriasis [Recovering/Resolving]
  - Skin fissures [Recovering/Resolving]
  - Skin haemorrhage [Recovering/Resolving]
  - Asthenia [Not Recovered/Not Resolved]
  - Pain of skin [Recovering/Resolving]
  - Dry skin [Recovering/Resolving]
